FAERS Safety Report 11264448 (Version 1)
Quarter: 2015Q3

REPORT INFORMATION
  Report Type: Spontaneous
  Country: US (occurrence: None)
  Receive Date: 20150710
  Receipt Date: 20150710
  Transmission Date: 20151125
  Serious: No
  Sender: FDA-Public Use
  Company Number: None

PATIENT
  Age: 61 Year
  Sex: Female

DRUGS (1)
  1. EUFLEXXA [Suspect]
     Active Substance: HYALURONATE SODIUM
     Indication: OSTEOARTHRITIS
     Dosage: EUFLEXXA 10 MG/ML INJECTION
     Dates: start: 20150618

REACTIONS (1)
  - Headache [None]

NARRATIVE: CASE EVENT DATE: 20150709
